FAERS Safety Report 7971905-X (Version None)
Quarter: 2011Q4

REPORT INFORMATION
  Report Type: 
  Country: None (occurrence: None)
  Receive Date: 20111212
  Receipt Date: 20111203
  Transmission Date: 20120403
  Serious: Yes (Other)
  Sender: FDA-Public Use
  Company Number: PHHY2011MX106731

PATIENT
  Sex: Female

DRUGS (2)
  1. EXFORGE [Suspect]
     Indication: HYPERTENSION
     Dosage: 1 DF, (VALSARTAN 160 MG, AMLODIPINE 10 MG) ONCE A DAY
     Dates: start: 20110601
  2. ACENOCOUMAROL [Concomitant]
     Indication: MITRAL VALVE STENOSIS
     Dosage: 0.5 DF, QD
     Dates: start: 20110601

REACTIONS (4)
  - CEREBROVASCULAR ACCIDENT [None]
  - HYPERTENSION [None]
  - DIABETES MELLITUS [None]
  - INTENTIONAL SELF-INJURY [None]
